FAERS Safety Report 15430203 (Version 2)
Quarter: 2018Q4

REPORT INFORMATION
  Report Type: Spontaneous
  Country: US (occurrence: US)
  Receive Date: 20180926
  Receipt Date: 20181213
  Transmission Date: 20190204
  Serious: No
  Sender: FDA-Public Use
  Company Number: US-GLAXOSMITHKLINE-US2018171059

PATIENT
  Age: 69 Year
  Sex: Male

DRUGS (1)
  1. BREO ELLIPTA [Suspect]
     Active Substance: FLUTICASONE FUROATE\VILANTEROL TRIFENATATE
     Indication: PRODUCT USED FOR UNKNOWN INDICATION
     Dosage: 1 PUFF(S), UNK

REACTIONS (2)
  - Product complaint [Unknown]
  - Wrong technique in device usage process [Unknown]

NARRATIVE: CASE EVENT DATE: 201809
